FAERS Safety Report 8451118-8 (Version None)
Quarter: 2012Q2

REPORT INFORMATION
  Report Type: 
  Country: None (occurrence: None)
  Receive Date: 20120613
  Receipt Date: 20120606
  Transmission Date: 20120825
  Serious: Yes (Hospitalization)
  Sender: FDA-Public Use
  Company Number: 2011SP053548

PATIENT
  Sex: Male

DRUGS (4)
  1. PEGINTERFERON ALFA-2B [Suspect]
     Indication: HEPATITIS C
     Dosage: UNK;UNK
     Dates: start: 20110614, end: 20120520
  2. SPIRIVA [Concomitant]
  3. TRAMADOL HYDROCHLORIDE [Concomitant]
  4. ACETAMINOPHEN [Concomitant]

REACTIONS (15)
  - INJECTION SITE REACTION [None]
  - SKIN DISCOLOURATION [None]
  - DEHYDRATION [None]
  - LETHARGY [None]
  - SKIN ULCER [None]
  - INJECTION SITE MASS [None]
  - NEEDLE ISSUE [None]
  - WEIGHT DECREASED [None]
  - SKIN LESION [None]
  - SKIN NECROSIS [None]
  - INJECTION SITE SCAR [None]
  - ABDOMINAL PAIN UPPER [None]
  - HEPATIC INFECTION [None]
  - FATIGUE [None]
  - INFLUENZA LIKE ILLNESS [None]
